FAERS Safety Report 25996819 (Version 1)
Quarter: 2025Q4

REPORT INFORMATION
  Report Type: Spontaneous
  Country: JP (occurrence: JP)
  Receive Date: 20251104
  Receipt Date: 20251104
  Transmission Date: 20260117
  Serious: Yes (Death)
  Sender: ASTELLAS
  Company Number: JP-ASTELLAS-2025-AER-060959

PATIENT
  Age: 70 Year
  Sex: Female

DRUGS (1)
  1. CRESEMBA [Suspect]
     Active Substance: ISAVUCONAZONIUM SULFATE
     Indication: Product used for unknown indication
     Route: 042
     Dates: start: 20251022, end: 20251024

REACTIONS (1)
  - Diffuse large B-cell lymphoma [Fatal]

NARRATIVE: CASE EVENT DATE: 20251024
